FAERS Safety Report 25831345 (Version 3)
Quarter: 2025Q4

REPORT INFORMATION
  Report Type: Report from Study
  Country: US (occurrence: US)
  Receive Date: 20250922
  Receipt Date: 20251014
  Transmission Date: 20260117
  Serious: Yes (Hospitalization, Other)
  Sender: EMD SERONO INC
  Company Number: US-Merck Healthcare KGaA-2025044075

PATIENT
  Sex: Female

DRUGS (2)
  1. MAVENCLAD [Suspect]
     Active Substance: CLADRIBINE
     Indication: Multiple sclerosis
     Dosage: YEAR ONE MONTH ONE THERAPY
     Dates: start: 20250827, end: 20250901
  2. SYNTHROID [Concomitant]
     Active Substance: LEVOTHYROXINE SODIUM
     Indication: Product used for unknown indication
     Dosage: DAILY

REACTIONS (12)
  - Synovial cyst [Unknown]
  - Urticaria [Recovered/Resolved]
  - Weight increased [Unknown]
  - Nausea [Unknown]
  - Arthropathy [Unknown]
  - Ear discomfort [Recovered/Resolved]
  - Ear pain [Recovered/Resolved]
  - Facial pain [Recovered/Resolved]
  - Facial discomfort [Recovered/Resolved]
  - Pain in extremity [Unknown]
  - Pain of skin [Unknown]
  - Oedema peripheral [Unknown]
